FAERS Safety Report 6392206-X (Version None)
Quarter: 2009Q4

REPORT INFORMATION
  Report Type: 
  Country: None (occurrence: None)
  Receive Date: 20091007
  Receipt Date: 20091002
  Transmission Date: 20100525
  Serious: Yes (Hospitalization, Other)
  Sender: FDA-Public Use
  Company Number: FR-AVENTIS-200912477FR

PATIENT
  Sex: Female

DRUGS (3)
  1. TAXOTERE [Suspect]
     Route: 042
     Dates: start: 20090609, end: 20090609
  2. ZOPHREN                            /00955301/ [Concomitant]
     Indication: PREMEDICATION
     Route: 042
     Dates: start: 20090609
  3. SOLU-MEDROL [Concomitant]
     Indication: PREMEDICATION
     Route: 042
     Dates: start: 20090609

REACTIONS (3)
  - FEBRILE NEUTROPENIA [None]
  - PRODUCT QUALITY ISSUE [None]
  - THERMAL BURN [None]
